FAERS Safety Report 7704140-0 (Version None)
Quarter: 2011Q3

REPORT INFORMATION
  Report Type: 
  Country: None (occurrence: None)
  Receive Date: 20110823
  Receipt Date: 20110726
  Transmission Date: 20111222
  Serious: Yes (Death, Hospitalization, Other)
  Sender: FDA-Public Use
  Company Number: JP-BAYER-2010-002880

PATIENT
  Age: 64 Year
  Sex: Male
  Weight: 61 kg

DRUGS (18)
  1. NEXAVAR [Suspect]
     Indication: HEPATIC NEOPLASM MALIGNANT
     Dosage: 400 MG, QD
     Route: 048
     Dates: start: 20100617, end: 20100816
  2. ACTOS [Concomitant]
     Dosage: DAILY DOSE 30 MG
     Route: 048
     Dates: end: 20100907
  3. AKIRIDEN [Concomitant]
     Dosage: DAILY DOSE 3 MG
     Route: 048
  4. CALNATE [Concomitant]
     Dosage: DAILY DOSE 5 MG
     Route: 048
  5. CORINAEL [Concomitant]
     Dosage: DAILY DOSE 20 MG
     Route: 048
     Dates: end: 20100923
  6. MUCOSTA [Concomitant]
     Dosage: DAILY DOSE 300 MG
     Route: 048
     Dates: start: 20100921, end: 20101007
  7. ETISEDAN [Concomitant]
     Dosage: DAILY DOSE 3 MG
     Route: 048
  8. SULPIRIDE [Concomitant]
     Dosage: DAILY DOSE 300 MG
     Route: 048
  9. SEPAMIT [Concomitant]
     Dosage: DAILY DOSE 20 MG
     Route: 048
     Dates: start: 20100924, end: 20101007
  10. SORNILART TAIYO [Concomitant]
     Dosage: DAILY DOSE 150 MG
     Route: 048
     Dates: end: 20100921
  11. AMARYL [Concomitant]
     Dosage: DAILY DOSE 3 MG
     Route: 048
     Dates: end: 20100907
  12. HALOPERIDOL [Concomitant]
     Dosage: DAILY DOSE 3 MG
     Route: 048
  13. URDENACIN [Concomitant]
     Dosage: DAILY DOSE 300 MG
     Route: 048
  14. PROLMON [Concomitant]
     Dosage: DAILY DOSE 60 MG
     Route: 048
     Dates: end: 20100921
  15. NEXAVAR [Suspect]
     Dosage: 400 MG, QD
     Route: 048
     Dates: start: 20100826, end: 20100907
  16. NEUOMIL [Concomitant]
     Dosage: DAILY DOSE 30 MG
     Route: 048
  17. DEXTROMETHORPHAN HYDROBROMIDE [Concomitant]
     Dosage: DAILY DOSE 90 MG
     Route: 048
  18. LANSOPRAZOLE [Concomitant]
     Dosage: DAILY DOSE 15 MG
     Route: 048
     Dates: start: 20101015, end: 20101025

REACTIONS (6)
  - HEPATIC NEOPLASM MALIGNANT [None]
  - VARICES OESOPHAGEAL [None]
  - HEPATIC FUNCTION ABNORMAL [None]
  - ASCITES [None]
  - LIP INJURY [None]
  - GASTROINTESTINAL HAEMORRHAGE [None]
